FAERS Safety Report 21156771 (Version 1)
Quarter: 2022Q3

REPORT INFORMATION
  Report Type: Spontaneous
  Country: US (occurrence: US)
  Receive Date: 20220801
  Receipt Date: 20220801
  Transmission Date: 20221027
  Serious: Yes (Other)
  Sender: FDA-Public Use
  Company Number: US-ELI_LILLY_AND_COMPANY-US202207009385

PATIENT
  Sex: Female

DRUGS (4)
  1. FORTEO [Suspect]
     Active Substance: TERIPARATIDE
     Indication: Product used for unknown indication
     Dosage: UNK UNK, UNKNOWN
     Route: 065
  2. FORTEO [Suspect]
     Active Substance: TERIPARATIDE
     Dosage: UNK UNK, UNKNOWN
     Route: 065
     Dates: start: 20220628
  3. IMURAN [Suspect]
     Active Substance: AZATHIOPRINE
     Indication: Immunosuppression
     Dosage: UNK UNK, UNKNOWN
     Route: 065
  4. MELOXICAM [Suspect]
     Active Substance: MELOXICAM
     Indication: Immunosuppression
     Dosage: UNK UNK, UNKNOWN
     Route: 065

REACTIONS (7)
  - Pelvic fracture [Unknown]
  - Pain in extremity [Unknown]
  - Muscle discomfort [Unknown]
  - Anaemia [Unknown]
  - Autoimmune disorder [Unknown]
  - Increased tendency to bruise [Unknown]
  - Injection site bruising [Unknown]
